FAERS Safety Report 9596524 (Version 1)
Quarter: 2013Q4

REPORT INFORMATION
  Report Type: Spontaneous
  Country: US (occurrence: US)
  Receive Date: 20131004
  Receipt Date: 20131004
  Transmission Date: 20140711
  Serious: No
  Sender: FDA-Public Use
  Company Number: US-BAYER-2013-118549

PATIENT
  Sex: Male

DRUGS (1)
  1. XOFIGO [Suspect]
     Dosage: STRENGTH/FORMULATION, DOSAGE: ^ON LABEL^; RECEIVED AT LEAST ONE TREATMENT.

REACTIONS (1)
  - Diarrhoea [Not Recovered/Not Resolved]
